FAERS Safety Report 5593448-3 (Version None)
Quarter: 2008Q1

REPORT INFORMATION
  Report Type: 
  Country: None (occurrence: None)
  Receive Date: 20080116
  Receipt Date: 20080110
  Transmission Date: 20080703
  Serious: Yes (Hospitalization)
  Sender: FDA-Public Use
  Company Number: ES-BAYER-200810606GPV

PATIENT
  Age: 78 Year
  Sex: Male

DRUGS (1)
  1. ADIRO 100 [Suspect]
     Indication: DRUG USE FOR UNKNOWN INDICATION
     Dosage: TOTAL DAILY DOSE: 100 MG  UNIT DOSE: 100 MG
     Route: 048
     Dates: start: 20050101, end: 20070401

REACTIONS (1)
  - GASTROINTESTINAL HAEMORRHAGE [None]
